FAERS Safety Report 22005150 (Version 2)
Quarter: 2023Q1

REPORT INFORMATION
  Report Type: Spontaneous
  Country: JP (occurrence: JP)
  Receive Date: 20230217
  Receipt Date: 20230316
  Transmission Date: 20230418
  Serious: Yes (Other)
  Sender: FDA-Public Use
  Company Number: JP-VIATRISJAPAN-2023M1014976AA

PATIENT
  Age: 46 Year
  Sex: Male

DRUGS (1)
  1. ATORVASTATIN CALCIUM [Suspect]
     Active Substance: ATORVASTATIN CALCIUM
     Indication: Product used for unknown indication
     Dosage: UNK
     Route: 048

REACTIONS (4)
  - Immune-mediated hepatic disorder [Recovering/Resolving]
  - Drug-induced liver injury [Recovering/Resolving]
  - Autoantibody positive [Unknown]
  - Hypergammaglobulinaemia [Recovered/Resolved]
